FAERS Safety Report 5892244-7 (Version None)
Quarter: 2008Q3

REPORT INFORMATION
  Report Type: 
  Country: None (occurrence: None)
  Receive Date: 20080919
  Receipt Date: 20080905
  Transmission Date: 20090109
  Serious: Yes (Other)
  Sender: FDA-Public Use
  Company Number: 2008US004259

PATIENT
  Age: 84 Year
  Sex: Male
  Weight: 69.8 kg

DRUGS (7)
  1. ALOXI [Suspect]
     Indication: PROPHYLAXIS OF NAUSEA AND VOMITING
     Dosage: 0.25MG, SINGLE, INTRAVENOUS
     Route: 042
     Dates: start: 20080708, end: 20080708
  2. DECARDRON /00016001/ (DEXAMETHASONE) [Concomitant]
  3. FLOMAX /00889901/ (MORNIFLUMATE) [Concomitant]
  4. AVODART [Concomitant]
  5. VIAGRA /0136750/ (SILDENAFIL) [Concomitant]
  6. PENALAC (CICLOPIROX) SOLUTION (EXCEPT SYRUP) [Concomitant]
  7. PEPCID /00706001/ (FAMOTIDINE) [Concomitant]

REACTIONS (7)
  - DIZZINESS [None]
  - DRUG HYPERSENSITIVITY [None]
  - DYSARTHRIA [None]
  - HYPOAESTHESIA [None]
  - LETHARGY [None]
  - POSTURE ABNORMAL [None]
  - SPEECH DISORDER [None]
